FAERS Safety Report 7599392-4 (Version None)
Quarter: 2011Q3

REPORT INFORMATION
  Report Type: 
  Country: None (occurrence: None)
  Receive Date: 20110711
  Receipt Date: 20110628
  Transmission Date: 20111222
  Serious: Yes (Other)
  Sender: FDA-Public Use
  Company Number: SG-BAYER-2011-056202

PATIENT
  Age: 23 Year
  Sex: Male
  Weight: 69 kg

DRUGS (4)
  1. AVELOX [Suspect]
     Indication: PRODUCT USED FOR UNKNOWN INDICATION
     Dosage: 400 MG, QD
     Route: 048
     Dates: start: 20110416, end: 20110419
  2. BENADRYL [Concomitant]
     Dosage: 10 ML, UNK
     Route: 048
     Dates: start: 20110416, end: 20110419
  3. DIFFLAM [Concomitant]
     Dosage: UNK UNK, QID
     Route: 048
     Dates: start: 20110416, end: 20110416
  4. ACETAMINOPHEN [Concomitant]
     Dosage: 1000 MG, QID
     Route: 048
     Dates: start: 20110416, end: 20110416

REACTIONS (2)
  - URTICARIA [None]
  - EYE SWELLING [None]
